FAERS Safety Report 7336053 (Version 2)
Quarter: 2020Q3

REPORT INFORMATION
  Report Type: Report from Study
  Country: TW (occurrence: TW)
  Receive Date: 20100330
  Receipt Date: 20101025
  Transmission Date: 20201105
  Serious: Yes (Death, Hospitalization)
  Sender: FDA-Public Use
  Company Number: TW-JNJFOC-20081201723

PATIENT
  Age: 86 Year
  Sex: Male
  Weight: 63.8 kg

DRUGS (36)
  1. CYTARABINE. [Suspect]
     Active Substance: CYTARABINE
     Route: 058
  2. PLATYCODON FLUID EXTRACT [Concomitant]
     Indication: COUGH
     Dosage: 4 TIMES A DAY WHEN NECESSARY
     Route: 048
  3. DECADRON [Concomitant]
     Active Substance: DEXAMETHASONE
     Indication: PROPHYLAXIS
     Route: 042
  4. LACTULOSE. [Concomitant]
     Active Substance: LACTULOSE
     Indication: CONSTIPATION
     Route: 048
  5. BENAZON [Concomitant]
     Indication: HAEMORRHOIDS
     Route: 061
  6. BORRAGINOL?N [Concomitant]
     Route: 054
  7. ACETYLCYSTEINE. [Concomitant]
     Active Substance: ACETYLCYSTEINE
     Route: 048
  8. TRAMADOL HYDROCHLORIDE. [Concomitant]
     Active Substance: TRAMADOL HYDROCHLORIDE
     Indication: CELLULITIS
     Route: 042
  9. MAGNESIUM [Concomitant]
     Active Substance: MAGNESIUM
     Indication: CONSTIPATION
     Route: 048
  10. SENNA [Concomitant]
     Indication: CONSTIPATION PROPHYLAXIS
     Route: 048
  11. COMBIVENT [Concomitant]
     Active Substance: ALBUTEROL SULFATE\IPRATROPIUM BROMIDE
     Indication: PNEUMONIA
     Dosage: 140 MCG
     Route: 055
  12. METOCLOPRAMIDE. [Concomitant]
     Active Substance: METOCLOPRAMIDE
     Indication: PROPHYLAXIS
     Route: 042
  13. ACETYLCYSTEINE. [Concomitant]
     Active Substance: ACETYLCYSTEINE
     Indication: PNEUMONIA
     Route: 048
  14. LEVOFLOXACIN. [Concomitant]
     Active Substance: LEVOFLOXACIN
     Route: 048
  15. TRANEXAMIC ACID. [Concomitant]
     Active Substance: TRANEXAMIC ACID
     Indication: HAEMATURIA
     Route: 042
  16. NITROGLYCERIN. [Concomitant]
     Active Substance: NITROGLYCERIN
     Indication: CHEST DISCOMFORT
     Dosage: Q5M P.R.N.
     Route: 060
  17. LACTULOSE. [Concomitant]
     Active Substance: LACTULOSE
     Route: 048
  18. TRIAMCINOLONE ACETONIDE. [Concomitant]
     Active Substance: TRIAMCINOLONE ACETONIDE
     Indication: PROPHYLAXIS
     Route: 061
  19. TIGECYCLINE. [Concomitant]
     Active Substance: TIGECYCLINE
     Indication: PNEUMONIA
     Route: 042
  20. HYDROCHLOROTHIAZIDE. [Concomitant]
     Active Substance: HYDROCHLOROTHIAZIDE
     Indication: RENAL FAILURE
     Route: 048
  21. CYTARABINE. [Suspect]
     Active Substance: CYTARABINE
     Indication: ACUTE MYELOID LEUKAEMIA
     Dosage: DOSE DELAYED DUE TO NEUTROPIC FEVER
     Route: 058
  22. DIFLUCORTOLONE VALERATE [Concomitant]
     Active Substance: DIFLUCORTOLONE VALERATE
     Dosage: 0.1%
     Route: 061
  23. LACTULOSE. [Concomitant]
     Active Substance: LACTULOSE
     Route: 048
  24. CEFTAZIDIME. [Concomitant]
     Active Substance: CEFTAZIDIME
     Indication: PNEUMONIA
     Route: 042
  25. LORAZEPAM. [Concomitant]
     Active Substance: LORAZEPAM
     Indication: INSOMNIA
     Dosage: ONCE EVERY BEDTIME (QHS)
     Route: 048
  26. AMLODIPINE [Concomitant]
     Active Substance: AMLODIPINE BESYLATE
     Indication: HYPERTENSION
     Route: 048
  27. ZOLPIDEM [Concomitant]
     Active Substance: ZOLPIDEM TARTRATE
     Indication: INSOMNIA
     Route: 048
  28. SENNA [Concomitant]
     Route: 048
  29. MEGESTROL ACETATE. [Concomitant]
     Active Substance: MEGESTROL ACETATE
     Indication: DECREASED APPETITE
     Route: 048
  30. LACTULOSE. [Concomitant]
     Active Substance: LACTULOSE
     Indication: ABDOMINAL DISTENSION
     Route: 048
  31. METOCLOPRAMIDE. [Concomitant]
     Active Substance: METOCLOPRAMIDE
     Indication: NAUSEA
     Route: 042
  32. CYTARABINE. [Suspect]
     Active Substance: CYTARABINE
     Route: 058
  33. CYTARABINE. [Suspect]
     Active Substance: CYTARABINE
     Dosage: CYCLE 1
     Route: 058
  34. REGROW [Concomitant]
     Indication: COUGH
     Dosage: ONCE EVERY BEDTIME (QHS)
     Route: 048
  35. ALLERMIN [Concomitant]
     Indication: PROPHYLAXIS
     Route: 042
  36. CO?DIOVAN [Concomitant]
     Active Substance: HYDROCHLOROTHIAZIDE\VALSARTAN
     Indication: HYPERTENSION
     Route: 048

REACTIONS (9)
  - Shock [Recovered/Resolved]
  - Depressed level of consciousness [Not Recovered/Not Resolved]
  - Septic shock [Fatal]
  - Pyrexia [Recovered/Resolved]
  - Cellulitis [Recovered/Resolved with Sequelae]
  - Pneumonia [Recovered/Resolved]
  - Generalised oedema [Not Recovered/Not Resolved]
  - Renal failure [Not Recovered/Not Resolved]
  - Cardiac failure [Not Recovered/Not Resolved]

NARRATIVE: CASE EVENT DATE: 20081219
